FAERS Safety Report 5137725-9 (Version None)
Quarter: 2006Q4

REPORT INFORMATION
  Report Type: 
  Country: None (occurrence: None)
  Receive Date: 20061030
  Receipt Date: 20051223
  Transmission Date: 20070319
  Serious: No
  Sender: FDA-Public Use
  Company Number: US-GLAXOSMITHKLINE-A0586915A

PATIENT
  Age: 70 Year
  Sex: Male

DRUGS (4)
  1. ADVAIR HFA [Suspect]
     Route: 055
     Dates: start: 20050810, end: 20051221
  2. ALOPURINOL [Concomitant]
  3. TOPROL-XL [Concomitant]
  4. FOSINOPRIL SODIUM [Concomitant]

REACTIONS (4)
  - COUGH [None]
  - DRY THROAT [None]
  - DYSPHONIA [None]
  - DYSPNOEA [None]
